FAERS Safety Report 6544116-2 (Version None)
Quarter: 2010Q1

REPORT INFORMATION
  Report Type: 
  Country: None (occurrence: None)
  Receive Date: 20100119
  Receipt Date: 20100119
  Transmission Date: 20100710
  Serious: Yes (Other)
  Sender: FDA-Public Use
  Company Number: None

PATIENT
  Age: 50 Year
  Sex: Female
  Weight: 65.7716 kg

DRUGS (1)
  1. STADOL [Suspect]
     Indication: MIGRAINE
     Dosage: 1-2 SPRAYS Q 4-6 HRS NASAL
     Route: 045
     Dates: start: 20000501, end: 20081123

REACTIONS (1)
  - PANCREATITIS [None]
